FAERS Safety Report 9447771 (Version 1)
Quarter: 2013Q3

REPORT INFORMATION
  Report Type: Spontaneous
  Country: IN (occurrence: None)
  Receive Date: 20130805
  Receipt Date: 20130805
  Transmission Date: 20140515
  Serious: Yes (Other)
  Sender: FDA-Public Use
  Company Number: SYM-2013-07403

PATIENT
  Age: 55 Year
  Sex: Male

DRUGS (3)
  1. FLUOROURACIL (FLUOROURACIL) (FLUOROURACIL) [Suspect]
     Indication: COLON CANCER
     Dosage: NOT OTHERWISE SPECIFIED
     Route: 042
  2. OXALIPLATIN (OXALIPLATIN) (OXALIPLATIN) [Suspect]
     Indication: COLON CANCER
     Dosage: NOT OTHERWISE SPECIFIED
     Route: 042
  3. LEUCOVORIN [Concomitant]

REACTIONS (1)
  - Leukoencephalopathy [None]
